FAERS Safety Report 4912256-7 (Version None)
Quarter: 2006Q1

REPORT INFORMATION
  Report Type: 
  Country: None (occurrence: None)
  Receive Date: 20060215
  Receipt Date: 20051122
  Transmission Date: 20060701
  Serious: No
  Sender: FDA-Public Use
  Company Number: US-GLAXOSMITHKLINE-A0583444A

PATIENT
  Age: 45 Year
  Sex: Male

DRUGS (5)
  1. VALTREX [Suspect]
     Dosage: 1G THREE TIMES PER DAY
     Route: 048
     Dates: start: 20051117, end: 20051119
  2. LIPITOR [Concomitant]
  3. ALTACE [Concomitant]
  4. PLAVIX [Concomitant]
  5. TOPROL [Concomitant]

REACTIONS (2)
  - ERYTHEMA [None]
  - FACE OEDEMA [None]
